FAERS Safety Report 9775247 (Version 2)
Quarter: 2013Q4

REPORT INFORMATION
  Report Type: Spontaneous
  Country: TW (occurrence: TW)
  Receive Date: 20131220
  Receipt Date: 20131220
  Transmission Date: 20140711
  Serious: Yes (Hospitalization)
  Sender: FDA-Public Use
  Company Number: TW-BAXTER-2013BAX048267

PATIENT
  Sex: 0

DRUGS (1)
  1. DIANEAL PD-2, PERITONEAL DIALYSIS SOLUTION WITH 1.5% DEXTROSE ^BAXTER^ [Suspect]
     Indication: PERITONEAL DIALYSIS
     Route: 033
     Dates: start: 20131021

REACTIONS (8)
  - Gastroenteritis [Recovering/Resolving]
  - Gastric haemorrhage [Unknown]
  - Oedema [Unknown]
  - Erythema [Unknown]
  - Skin exfoliation [Recovering/Resolving]
  - Wound [Unknown]
  - Pruritus [Unknown]
  - Pain [Unknown]
